FAERS Safety Report 9427828 (Version 1)
Quarter: 2013Q3

REPORT INFORMATION
  Report Type: Report from Study
  Country: US (occurrence: US)
  Receive Date: 20130730
  Receipt Date: 20130730
  Transmission Date: 20140515
  Serious: No
  Sender: FDA-Public Use
  Company Number: US-ABBOTT-12P-163-0991040-00

PATIENT
  Age: 62 Year
  Sex: Female
  Weight: 90.8 kg

DRUGS (6)
  1. NIASPAN [Suspect]
     Indication: LIPOPROTEIN (A) DECREASED
  2. NIASPAN [Suspect]
     Indication: LIPOPROTEIN (A) DECREASED
     Dosage: EVERY NIGHT
     Dates: start: 2011
  3. ASPIRIN [Concomitant]
     Indication: PRODUCT USED FOR UNKNOWN INDICATION
  4. UNKNOWN CHOLESTEROL MEDICATION [Concomitant]
     Indication: BLOOD CHOLESTEROL
  5. BENICAR [Concomitant]
     Indication: PRODUCT USED FOR UNKNOWN INDICATION
  6. UNKNOWN MEDICATION [Concomitant]
     Indication: ARTHRITIS

REACTIONS (1)
  - Pruritus generalised [Not Recovered/Not Resolved]
